FAERS Safety Report 4883406-6 (Version None)
Quarter: 2006Q1

REPORT INFORMATION
  Report Type: 
  Country: None (occurrence: None)
  Receive Date: 20060113
  Receipt Date: 20060105
  Transmission Date: 20060701
  Serious: Yes (Other)
  Sender: FDA-Public Use
  Company Number: 2005163218

PATIENT
  Age: 74 Year
  Sex: Female

DRUGS (8)
  1. XALATAN [Suspect]
     Indication: GLAUCOMA
     Dosage: (1 IN 1 D), INTRAOCULAR
     Route: 031
     Dates: start: 20000101
  2. ASPIRIN [Concomitant]
  3. CLORANA (HYDROCHLOROTHIAZIDE) [Concomitant]
  4. SIMVASTATIN [Concomitant]
  5. PROPRANOLOL [Concomitant]
  6. SULPIRIDE (SULPIRIDE) [Concomitant]
  7. BROMAZEPAM (BROMAZEPAM) [Concomitant]
  8. ENALAPRIL MALEATE [Concomitant]

REACTIONS (1)
  - CORONARY ARTERY SURGERY [None]
